FAERS Safety Report 12827630 (Version 3)
Quarter: 2016Q4

REPORT INFORMATION
  Report Type: Spontaneous
  Country: US (occurrence: US)
  Receive Date: 20161007
  Receipt Date: 20161128
  Transmission Date: 20170207
  Serious: No
  Sender: FDA-Public Use
  Company Number: US-PFIZER INC-2016469735

PATIENT
  Age: 56 Year
  Sex: Female
  Weight: 50.5 kg

DRUGS (3)
  1. SUTENT [Suspect]
     Active Substance: SUNITINIB MALATE
     Dosage: 25 MG CONTINUOUS DOSING
     Dates: start: 20160928, end: 20161005
  2. SUTENT [Suspect]
     Active Substance: SUNITINIB MALATE
     Indication: MALIGNANT NEOPLASM OF THYMUS
     Dosage: UNK
     Dates: start: 20160902, end: 201609
  3. SUTENT [Suspect]
     Active Substance: SUNITINIB MALATE
     Dosage: 37.5MG CONTINUOUS DOSING
     Dates: start: 201609, end: 20160927

REACTIONS (4)
  - Neutrophil count decreased [Recovered/Resolved]
  - Product use issue [Unknown]
  - Hypothyroidism [Unknown]
  - Pleural effusion [Not Recovered/Not Resolved]

NARRATIVE: CASE EVENT DATE: 20160927
